FAERS Safety Report 4436347-2 (Version None)
Quarter: 2004Q3

REPORT INFORMATION
  Report Type: 
  Country: None (occurrence: None)
  Receive Date: 20040728
  Receipt Date: 20040317
  Transmission Date: 20050211
  Serious: Yes (Hospitalization)
  Sender: FDA-Public Use
  Company Number: 205235

PATIENT
  Age: 73 Year
  Sex: Male
  Weight: 110.2 kg

DRUGS (3)
  1. RITUXAN [Suspect]
     Indication: LYMPHOMA
     Dosage: 885 MG, INTRAVENOUS
     Route: 042
     Dates: start: 20040309, end: 20040309
  2. BENADRYL [Concomitant]
  3. TYLENOL [Concomitant]

REACTIONS (1)
  - RESPIRATORY DISTRESS [None]
